FAERS Safety Report 6342848-2 (Version None)
Quarter: 2009Q3

REPORT INFORMATION
  Report Type: 
  Country: None (occurrence: None)
  Receive Date: 20090908
  Receipt Date: 20090824
  Transmission Date: 20100115
  Serious: Yes (Life-Threatening, Hospitalization)
  Sender: FDA-Public Use
  Company Number: GR-ROCHE-652119

PATIENT
  Age: 60 Year
  Sex: Female

DRUGS (2)
  1. PEG-INTERFERON A-2A (RO 25-8310) [Suspect]
     Route: 065
     Dates: start: 20070101, end: 20070701
  2. RIBAVIRIN [Suspect]
     Route: 065
     Dates: start: 20070101, end: 20070701

REACTIONS (9)
  - ANAEMIA HAEMOLYTIC AUTOIMMUNE [None]
  - ASPERGILLOSIS [None]
  - DIABETES MELLITUS INADEQUATE CONTROL [None]
  - HEPATIC ENCEPHALOPATHY [None]
  - HEPATIC FAILURE [None]
  - HYPOTHYROIDISM [None]
  - HYPOXIA [None]
  - PLEURAL EFFUSION [None]
  - RESPIRATORY ALKALOSIS [None]
